FAERS Safety Report 9980664 (Version 1)
Quarter: 2014Q1

REPORT INFORMATION
  Report Type: Spontaneous
  Country: US (occurrence: None)
  Receive Date: 20140305
  Receipt Date: 20140305
  Transmission Date: 20141002
  Serious: No
  Sender: FDA-Public Use
  Company Number: None

PATIENT
  Age: 54 Year
  Sex: Female

DRUGS (1)
  1. TECFIDERA 240 MG BIOGEN IDEC [Suspect]
     Route: 048
     Dates: start: 20140130

REACTIONS (4)
  - Flushing [None]
  - Abdominal pain upper [None]
  - Flatulence [None]
  - Diarrhoea [None]
